FAERS Safety Report 9812278 (Version 4)
Quarter: 2014Q1

REPORT INFORMATION
  Report Type: Report from Study
  Country: NL (occurrence: NL)
  Receive Date: 20140113
  Receipt Date: 20140126
  Transmission Date: 20141002
  Serious: Yes (Hospitalization)
  Sender: FDA-Public Use
  Company Number: NL-ROCHE-1315857

PATIENT
  Age: 72 Year
  Sex: Male

DRUGS (3)
  1. CAPECITABINE [Suspect]
     Indication: GASTRIC CANCER
     Route: 048
     Dates: start: 20131128, end: 20131212
  2. EPIRUBICIN [Suspect]
     Indication: GASTRIC CANCER
     Route: 042
     Dates: start: 20131128, end: 20131128
  3. CISPLATIN [Suspect]
     Indication: GASTRIC CANCER
     Dosage: EVERY 3 WEEKS, EVERY 1 WEEK AND 5 WEEKS
     Route: 042
     Dates: start: 20131128, end: 20131128

REACTIONS (3)
  - Mucosal inflammation [Recovered/Resolved]
  - Rectal haemorrhage [Recovered/Resolved]
  - Febrile neutropenia [Recovered/Resolved]
